FAERS Safety Report 4575474-6 (Version None)
Quarter: 2005Q1

REPORT INFORMATION
  Report Type: 
  Country: None (occurrence: None)
  Receive Date: 20050131
  Receipt Date: 20050131
  Transmission Date: 20050727
  Serious: Yes (Other)
  Sender: FDA-Public Use
  Company Number: None

PATIENT
  Sex: Male
  Weight: 77.1115 kg

DRUGS (3)
  1. EFFEXOR [Suspect]
     Indication: ANXIETY
     Dosage: 150MG   DAY
  2. EFFEXOR [Suspect]
     Indication: DEPRESSION
     Dosage: 150MG   DAY
  3. EFFEXOR [Suspect]
     Indication: PANIC ATTACK
     Dosage: 150MG   DAY

REACTIONS (1)
  - DRUG WITHDRAWAL SYNDROME [None]
